FAERS Safety Report 8925978 (Version 1)
Quarter: 2012Q4

REPORT INFORMATION
  Report Type: 
  Country: JP (occurrence: JP)
  Receive Date: 20121126
  Receipt Date: 20121126
  Transmission Date: 20130627
  Serious: Yes (Other)
  Sender: FDA-Public Use
  Company Number: JP-ALLERGAN-1214031US

PATIENT
  Age: 55 Year
  Sex: Male

DRUGS (23)
  1. BOTOX [Suspect]
     Indication: MUSCLE SPASMS
     Dosage: 25 UNITS, single
     Route: 030
     Dates: start: 20120107, end: 20120107
  2. BOTOX [Suspect]
     Dosage: 25 UNITS, single
     Route: 030
     Dates: start: 20120107, end: 20120107
  3. BOTOX [Suspect]
     Dosage: 12.5 UNITS, single
     Route: 030
     Dates: start: 20120107, end: 20120107
  4. BOTOX [Suspect]
     Dosage: 12.5 UNITS, single
     Route: 030
     Dates: start: 20120107, end: 20120107
  5. BOTOX [Suspect]
     Dosage: 12.5 UNITS, single
     Route: 030
     Dates: start: 20120107, end: 20120107
  6. BOTOX [Suspect]
     Dosage: 12.5 UNITS, single
     Route: 030
     Dates: start: 20120107, end: 20120107
  7. BOTOX [Suspect]
     Dosage: 25 UNITS, single
     Route: 030
     Dates: start: 20120107, end: 20120107
  8. BOTOX [Suspect]
     Dosage: 25 UNITS, single
     Route: 030
     Dates: start: 20120107, end: 20120107
  9. BOTOX [Suspect]
     Dosage: 25 UNITS, single
     Route: 030
     Dates: start: 20120107, end: 20120107
  10. BOTOX [Suspect]
     Dosage: 25 UNITS, single
     Route: 030
     Dates: start: 20120107, end: 20120107
  11. BOTOX [Suspect]
     Dosage: 50 UNITS, single
     Route: 030
     Dates: start: 20120107, end: 20120107
  12. BOTOX [Suspect]
     Dosage: 50 UNITS, single
     Route: 030
     Dates: start: 20120107, end: 20120107
  13. BOTOX [Suspect]
     Dosage: 25 UNITS, single
     Route: 030
     Dates: start: 20120418, end: 20120418
  14. BOTOX [Suspect]
     Dosage: 50 UNITS, single
     Route: 030
     Dates: start: 20120418, end: 20120418
  15. BOTOX [Suspect]
     Dosage: 12.5 UNITS, UNK
     Route: 030
     Dates: start: 20120418, end: 20120418
  16. BOTOX [Suspect]
     Dosage: 12.5 UNITS, single
     Route: 030
     Dates: start: 20120418, end: 20120418
  17. BOTOX [Suspect]
     Dosage: 25 UNITS, single
     Route: 030
     Dates: start: 20120418, end: 20120418
  18. BOTOX [Suspect]
     Dosage: 25 UNITS, single
     Route: 030
     Dates: start: 20120418, end: 20120418
  19. BOTOX [Suspect]
     Dosage: 25 UNITS, single
     Route: 030
     Dates: start: 20120418, end: 20120418
  20. BOTOX [Suspect]
     Dosage: 25 UNITS, single
     Route: 030
     Dates: start: 20120418, end: 20120418
  21. BOTOX [Suspect]
     Dosage: 50 UNITS, single
     Route: 030
     Dates: start: 20120418, end: 20120418
  22. BOTOX [Suspect]
     Dosage: 50 UNITS, single
     Route: 030
     Dates: start: 20120418, end: 20120418
  23. CLOTIAZEPAM [Concomitant]
     Indication: INSOMNIA
     Dosage: UNK
     Dates: start: 20120306, end: 20120508

REACTIONS (3)
  - Radial nerve palsy [Recovered/Resolved]
  - Radial nerve palsy [Recovered/Resolved]
  - Off label use [Unknown]
